FAERS Safety Report 19597837 (Version 1)
Quarter: 2021Q3

REPORT INFORMATION
  Report Type: Spontaneous
  Country: US (occurrence: US)
  Receive Date: 20210723
  Receipt Date: 20210723
  Transmission Date: 20211014
  Serious: Yes (Other)
  Sender: FDA-Public Use
  Company Number: US-ACCORD-232115

PATIENT
  Age: 17 Year
  Sex: Female

DRUGS (4)
  1. CLONAZEPAM. [Concomitant]
     Active Substance: CLONAZEPAM
     Indication: IDIOPATHIC GENERALISED EPILEPSY
     Dosage: INCREASED DOSE
  2. LEVETIRACETAM. [Suspect]
     Active Substance: LEVETIRACETAM
     Indication: PARTIAL SEIZURES
  3. CLONAZEPAM. [Concomitant]
     Active Substance: CLONAZEPAM
     Indication: PARTIAL SEIZURES
     Dosage: INCREASED DOSE
  4. LEVETIRACETAM. [Suspect]
     Active Substance: LEVETIRACETAM
     Indication: IDIOPATHIC GENERALISED EPILEPSY

REACTIONS (1)
  - Neuropsychiatric symptoms [Unknown]
